FAERS Safety Report 10581194 (Version 3)
Quarter: 2015Q1

REPORT INFORMATION
  Report Type: Spontaneous
  Country: DE (occurrence: DE)
  Receive Date: 20141113
  Receipt Date: 20150322
  Transmission Date: 20150720
  Serious: Yes (Other)
  Sender: FDA-Public Use
  Company Number: DE-UCBSA-2014017335

PATIENT
  Age: 1 Month
  Sex: Female
  Weight: .73 kg

DRUGS (1)
  1. LEVETIRACETAM. [Suspect]
     Active Substance: LEVETIRACETAM
     Indication: SEIZURE
     Dosage: 18 MG, 3X/DAY (TID)
     Dates: start: 20140924, end: 20141009

REACTIONS (3)
  - Renal failure [Recovering/Resolving]
  - Overdose [Unknown]
  - Off label use [Unknown]

NARRATIVE: CASE EVENT DATE: 20140924
